FAERS Safety Report 4338095-6 (Version None)
Quarter: 2004Q2

REPORT INFORMATION
  Report Type: 
  Country: None (occurrence: None)
  Receive Date: 20040407
  Receipt Date: 20040326
  Transmission Date: 20050107
  Serious: Yes (Life-Threatening)
  Sender: FDA-Public Use
  Company Number: 205229

PATIENT
  Age: 55 Year
  Sex: Male

DRUGS (6)
  1. MABTHERA(RITUXIMAB) CONC FOR SOLUTION FOR INFUSION [Suspect]
     Indication: NON-HODGKIN'S LYMPHOMA
     Dosage: 500 MG, UNKNOWN, INTRAVENOUS
     Route: 042
     Dates: start: 20030401
  2. PEG-INTRON [Suspect]
     Indication: NON-HODGKIN'S LYMPHOMA
     Dosage: UNK, SUBCUTANEOUS
     Route: 058
     Dates: start: 20030401
  3. ETOPOSIDE [Suspect]
     Indication: NON-HODGKIN'S LYMPHOMA
     Dosage: 200 MG, UNKNOWN, INTRAVENOUS
     Route: 042
     Dates: start: 20030401
  4. CYCLOPHOSPHAMIDE [Suspect]
     Indication: NON-HODGKIN'S LYMPHOMA
     Dosage: 1100 MG, UNKNOWN, INTRAVENOUS
     Route: 042
     Dates: start: 20030401
  5. PREDNISONE TAB [Suspect]
     Indication: NON-HODGKIN'S LYMPHOMA
     Dosage: UNKNOWN, ORAL
     Route: 048
     Dates: start: 20030401
  6. ADRIABLASTINA (DOXORUBICIN HYDROCHLORIDE, DOXORUBICIN) [Suspect]
     Indication: NON-HODGKIN'S LYMPHOMA
     Dosage: 45 MG, UNKNOWN, INTRAVENOUS
     Route: 042
     Dates: start: 20030401

REACTIONS (1)
  - GLIOBLASTOMA MULTIFORME [None]
